FAERS Safety Report 25257098 (Version 1)
Quarter: 2025Q2

REPORT INFORMATION
  Report Type: Spontaneous
  Country: FR (occurrence: FR)
  Receive Date: 20250430
  Receipt Date: 20250430
  Transmission Date: 20250716
  Serious: Yes (Other)
  Sender: PFIZER
  Company Number: None

PATIENT
  Age: 83 Year
  Sex: Male
  Weight: 69 kg

DRUGS (9)
  1. VORICONAZOLE [Suspect]
     Active Substance: VORICONAZOLE
     Indication: Osteitis
     Dosage: 250 MG, 2X/DAY (EVERY 12 HOURS)
     Route: 048
     Dates: start: 20250326
  2. PIPERACILLIN SODIUM\TAZOBACTAM SODIUM [Suspect]
     Active Substance: PIPERACILLIN SODIUM\TAZOBACTAM SODIUM
     Indication: Osteitis
     Dosage: 4 G, 3X/DAY (4G EVERY 8HOURS/ 1.5G EVERY 8 HOURS)
     Route: 042
     Dates: start: 20250326
  3. LINEZOLID [Suspect]
     Active Substance: LINEZOLID
     Indication: Osteitis
     Dosage: 600 MG, 2X/DAY (EVERY 12 HOURS)
     Route: 048
     Dates: start: 20250326
  4. APIXABAN [Concomitant]
     Active Substance: APIXABAN
  5. ATORVASTATIN [Concomitant]
     Active Substance: ATORVASTATIN
  6. BISOPROLOL FUMARATE [Concomitant]
     Active Substance: BISOPROLOL FUMARATE
  7. DAPAGLIFLOZIN [Concomitant]
     Active Substance: DAPAGLIFLOZIN
  8. FUROSEMIDE [Concomitant]
     Active Substance: FUROSEMIDE
  9. INNOHEP [Concomitant]
     Active Substance: TINZAPARIN SODIUM

REACTIONS (4)
  - Hallucination, visual [Recovered/Resolved]
  - Nightmare [Not Recovered/Not Resolved]
  - Acute kidney injury [Not Recovered/Not Resolved]
  - Off label use [Unknown]

NARRATIVE: CASE EVENT DATE: 20250326
